FAERS Safety Report 6242398-8 (Version None)
Quarter: 2009Q2

REPORT INFORMATION
  Report Type: 
  Country: None (occurrence: None)
  Receive Date: 20090622
  Receipt Date: 20090622
  Transmission Date: 20091009
  Serious: No
  Sender: FDA-Public Use
  Company Number: None

PATIENT
  Age: 61 Year
  Sex: Male
  Weight: 117.9352 kg

DRUGS (1)
  1. ZICAM GEL SWABS UNKNOWN ZICAM LLC [Suspect]
     Indication: NASOPHARYNGITIS
     Dosage: 1 SWAB 2-4 DAILY- NASAL
     Route: 045
     Dates: start: 20060101, end: 20090609

REACTIONS (1)
  - ANOSMIA [None]
